FAERS Safety Report 7973521 (Version 6)
Quarter: 2012Q4

REPORT INFORMATION
  Report Type: Report from Study
  Country: DE (occurrence: DE)
  Receive Date: 20110603
  Receipt Date: 20121004
  Transmission Date: 20130627
  Serious: Yes (Hospitalization, Other)
  Sender: FDA-Public Use
  Company Number: DE-JNJFOC-20110510322

PATIENT
  Age: 10 Year
  Sex: Female
  Weight: 22 kg

DRUGS (4)
  1. REMICADE [Suspect]
     Indication: CROHN^S DISEASE
     Route: 042
     Dates: start: 20091210
  2. REMICADE [Suspect]
     Indication: CROHN^S DISEASE
     Route: 042
     Dates: start: 20080617
  3. AZATHIOPRINE [Concomitant]
  4. COTRIMOXAZOLE [Concomitant]

REACTIONS (2)
  - Drug ineffective [Recovered/Resolved with Sequelae]
  - Gastrointestinal inflammation [Recovered/Resolved with Sequelae]
